FAERS Safety Report 5402276-0 (Version None)
Quarter: 2007Q3

REPORT INFORMATION
  Report Type: 
  Country: None (occurrence: None)
  Receive Date: 20070730
  Receipt Date: 20070716
  Transmission Date: 20080115
  Serious: Yes (Hospitalization, Other)
  Sender: FDA-Public Use
  Company Number: 235894K07USA

PATIENT
  Age: 51 Year
  Sex: Female

DRUGS (8)
  1. REBIF [Suspect]
     Indication: MULTIPLE SCLEROSIS
     Dosage: 22 MCG, 3 IN 1 WEEKS, SUBCUTANEOUS
     Route: 058
     Dates: start: 20060314, end: 20070130
  2. LODINE [Concomitant]
  3. NEURONTIN [Concomitant]
  4. SYMMETREL [Concomitant]
  5. ZANAFLEX [Concomitant]
  6. ULTRAM [Concomitant]
  7. SEROQUEL [Concomitant]
  8. DIOVAN [Concomitant]

REACTIONS (4)
  - CONVULSION [None]
  - DYSPHAGIA [None]
  - FALL [None]
  - IMMOBILE [None]
